FAERS Safety Report 11864682 (Version 2)
Quarter: 2016Q1

REPORT INFORMATION
  Report Type: Spontaneous
  Country: JP (occurrence: JP)
  Receive Date: 20151223
  Receipt Date: 20160122
  Transmission Date: 20160526
  Serious: Yes (Death)
  Sender: FDA-Public Use
  Company Number: JP-SA-2015SA215814

PATIENT
  Age: 72 Year
  Sex: Male
  Weight: 63.5 kg

DRUGS (12)
  1. LUPRAC [Concomitant]
     Active Substance: TORSEMIDE
     Indication: RESPIRATORY TRACT CONGESTION
     Route: 048
     Dates: start: 20140919, end: 20140919
  2. LIPITOR [Concomitant]
     Active Substance: ATORVASTATIN CALCIUM
     Indication: LIPIDS
     Route: 048
     Dates: start: 20140914
  3. HEPARIN [Concomitant]
     Active Substance: HEPARIN SODIUM
     Dosage: HIGH DOSE
     Dates: end: 20140918
  4. BAYASPIRIN [Concomitant]
     Active Substance: ASPIRIN
     Indication: CHEST PAIN
     Route: 048
     Dates: start: 20140914, end: 20140918
  5. THYRADIN-S [Concomitant]
     Active Substance: LEVOTHYROXINE
     Indication: HYPOTHYROIDISM
     Route: 048
     Dates: start: 20140914
  6. COVERSYL [Concomitant]
     Active Substance: PERINDOPRIL
     Indication: HYPERTENSION
     Route: 048
     Dates: start: 20140914
  7. XARELTO [Suspect]
     Active Substance: RIVAROXABAN
     Indication: ARRHYTHMIA PROPHYLAXIS
     Route: 048
     Dates: start: 20140919, end: 20140919
  8. UROKINASE [Concomitant]
     Active Substance: UROKINASE
     Indication: MYOCARDIAL INFARCTION
     Dosage: WITH THE USE OF MICROCATHETER
     Dates: start: 20140913, end: 20140913
  9. PLAVIX [Suspect]
     Active Substance: CLOPIDOGREL BISULFATE
     Indication: ANTIPLATELET THERAPY
     Route: 048
     Dates: start: 20140919, end: 20140919
  10. ASPIRIN. [Concomitant]
     Active Substance: ASPIRIN
     Indication: PERICARDITIS
     Dates: start: 20140919, end: 20140919
  11. NEXIUM [Concomitant]
     Active Substance: ESOMEPRAZOLE MAGNESIUM
     Indication: PROPHYLAXIS AGAINST GASTROINTESTINAL ULCER
     Route: 048
     Dates: start: 20140917
  12. MAINTATE [Concomitant]
     Active Substance: BISOPROLOL FUMARATE
     Indication: HYPERTENSION
     Route: 048
     Dates: start: 20140913

REACTIONS (1)
  - Ventricle rupture [Fatal]

NARRATIVE: CASE EVENT DATE: 20140919
